FAERS Safety Report 12633314 (Version 1)
Quarter: 2016Q3

REPORT INFORMATION
  Report Type: Spontaneous
  Country: OM (occurrence: None)
  Receive Date: 20160808
  Receipt Date: 20160808
  Transmission Date: 20161109
  Serious: Yes (Other)
  Sender: FDA-Public Use
  Company Number: None

PATIENT
  Age: 50 Year
  Sex: Male
  Weight: 75 kg

DRUGS (1)
  1. PREGNYL [Suspect]
     Active Substance: CHORIOGONADOTROPIN ALFA
     Indication: SECONDARY HYPOGONADISM
     Route: 058
     Dates: start: 20160418, end: 20160706

REACTIONS (6)
  - Supraventricular extrasystoles [None]
  - Supraventricular tachycardia [None]
  - Heart rate irregular [None]
  - Ventricular extrasystoles [None]
  - Palpitations [None]
  - Extrasystoles [None]

NARRATIVE: CASE EVENT DATE: 20160706
